FAERS Safety Report 7182417-8 (Version None)
Quarter: 2010Q4

REPORT INFORMATION
  Report Type: 
  Country: None (occurrence: None)
  Receive Date: 20101221
  Receipt Date: 20100512
  Transmission Date: 20110411
  Serious: No
  Sender: FDA-Public Use
  Company Number: US-AMGEN-KDL412072

PATIENT

DRUGS (8)
  1. ENBREL [Suspect]
     Indication: PRODUCT USED FOR UNKNOWN INDICATION
     Dosage: 50 MG, QWK
     Route: 058
     Dates: start: 20050101
  2. LEVOTHYROXINE SODIUM [Concomitant]
     Dosage: 100 A?G, UNK
  3. VALSARTAN [Concomitant]
     Dosage: 800 MG, UNK
  4. GLUCOSAMINE W/CHONDROITIN SULFATES [Concomitant]
     Dosage: UNK UNK, UNK
  5. ERGOCALCIFEROL [Concomitant]
     Dosage: 1000 IU, UNK
  6. NAPROXEN SODIUM [Concomitant]
     Dosage: 220 MG, UNK
  7. MULTI-VITAMINS [Concomitant]
     Dosage: UNK UNK, UNK
  8. ACETAMINOPHEN [Concomitant]
     Dosage: 325 MG, UNK

REACTIONS (2)
  - PARAESTHESIA [None]
  - RHEUMATOID ARTHRITIS [None]
